FAERS Safety Report 9196031 (Version 1)
Quarter: 2013Q1

REPORT INFORMATION
  Report Type: Spontaneous
  Country: US (occurrence: None)
  Receive Date: 20120705
  Receipt Date: 20120705
  Transmission Date: 20140127
  Serious: Yes (Hospitalization)
  Sender: FDA-Public Use
  Company Number: US-CYPR-2012-000032

PATIENT
  Age: 55 Year
  Sex: Female
  Weight: 96 kg

DRUGS (9)
  1. CLOPIDOGREL [Suspect]
     Indication: ANTIPLATELET THERAPY
     Route: 048
     Dates: start: 20110405, end: 20120314
  2. ASPIRIN [Suspect]
     Indication: THROMBOSIS PROPHYLAXIS
     Route: 048
     Dates: start: 2005, end: 20120314
  3. COREG [Concomitant]
  4. HYZAAR [Concomitant]
  5. CRESTOR [Concomitant]
  6. NORVASC [Concomitant]
  7. TEKTURNA [Concomitant]
  8. LABETALOL [Concomitant]
  9. CYPHER STENT [Concomitant]

REACTIONS (1)
  - Back pain [None]
